FAERS Safety Report 7824527-5 (Version None)
Quarter: 2011Q4

REPORT INFORMATION
  Report Type: 
  Country: None (occurrence: None)
  Receive Date: 20111019
  Receipt Date: 20111005
  Transmission Date: 20120403
  Serious: Yes (Hospitalization, Other)
  Sender: FDA-Public Use
  Company Number: US-BAYER-2011-042466

PATIENT
  Age: 20 Year
  Sex: Female
  Weight: 244 kg

DRUGS (6)
  1. CLARITIN [Concomitant]
  2. YAZ [Suspect]
     Indication: PREMENSTRUAL SYNDROME
     Dosage: UNK
     Dates: start: 20070101, end: 20090101
  3. SINGULAIR [Concomitant]
  4. TOPAMAX [Concomitant]
  5. VITAMINS NOS [Concomitant]
  6. CYMBALTA [Concomitant]

REACTIONS (4)
  - GALLBLADDER DISORDER [None]
  - BILIARY DYSKINESIA [None]
  - INJURY [None]
  - PAIN [None]
